FAERS Safety Report 8617442-0 (Version None)
Quarter: 2012Q3

REPORT INFORMATION
  Report Type: 
  Country: None (occurrence: None)
  Receive Date: 20120824
  Receipt Date: 20120814
  Transmission Date: 20120928
  Serious: No
  Sender: FDA-Public Use
  Company Number: US-ASTRAZENECA-2012SE57546

PATIENT
  Age: 85 Year
  Sex: Female

DRUGS (2)
  1. VIMOVO [Suspect]
     Route: 048
  2. VIMOVO [Suspect]
     Route: 048

REACTIONS (4)
  - DIARRHOEA [None]
  - SINUS DISORDER [None]
  - ADVERSE DRUG REACTION [None]
  - RENAL DISORDER [None]
